FAERS Safety Report 21784506 (Version 1)
Quarter: 2022Q4

REPORT INFORMATION
  Report Type: Spontaneous
  Country: ES (occurrence: ES)
  Receive Date: 20221227
  Receipt Date: 20221227
  Transmission Date: 20230113
  Serious: Yes (Other)
  Sender: FDA-Public Use
  Company Number: ES-PFIZER INC-202201386142

PATIENT
  Age: 15 Year
  Sex: Male
  Weight: 80 kg

DRUGS (1)
  1. CLINDAMYCIN HYDROCHLORIDE [Suspect]
     Active Substance: CLINDAMYCIN HYDROCHLORIDE
     Dosage: UNK

REACTIONS (5)
  - Choking [Unknown]
  - Dysphagia [Unknown]
  - Abdominal pain [Unknown]
  - Off label use [Unknown]
  - Product administration error [Unknown]
